FAERS Safety Report 4848900-2 (Version None)
Quarter: 2005Q4

REPORT INFORMATION
  Report Type: 
  Country: None (occurrence: None)
  Receive Date: 20051208
  Receipt Date: 20051005
  Transmission Date: 20060501
  Serious: Yes (Hospitalization)
  Sender: FDA-Public Use
  Company Number: US-MERCK-0510USA04718

PATIENT
  Age: 60 Year
  Sex: Male
  Weight: 86 kg

DRUGS (3)
  1. VIOXX [Suspect]
     Indication: ARTHRALGIA
     Route: 048
     Dates: start: 20010314
  2. ASPIRIN [Concomitant]
     Route: 065
  3. VITAMINS (UNSPECIFIED) [Concomitant]
     Route: 065

REACTIONS (16)
  - ACUTE CORONARY SYNDROME [None]
  - ARTERIAL OCCLUSIVE DISEASE [None]
  - BRADYARRHYTHMIA [None]
  - DEPRESSION [None]
  - HEADACHE [None]
  - HYPERTENSION [None]
  - HYPOAESTHESIA [None]
  - INGUINAL HERNIA [None]
  - INSOMNIA [None]
  - MYOCARDIAL INFARCTION [None]
  - NEPHROLITHIASIS [None]
  - OESOPHAGEAL DISCOMFORT [None]
  - PLEURISY [None]
  - PNEUMONIA [None]
  - SICK SINUS SYNDROME [None]
  - VISION BLURRED [None]
